FAERS Safety Report 22019518 (Version 1)
Quarter: 2023Q1

REPORT INFORMATION
  Report Type: Spontaneous
  Country: US (occurrence: US)
  Receive Date: 20230222
  Receipt Date: 20230222
  Transmission Date: 20230418
  Serious: Yes (Other)
  Sender: FDA-Public Use
  Company Number: US-002147023-NVSC2023US035554

PATIENT
  Age: 27 Year
  Sex: Female

DRUGS (4)
  1. ENOXAPARIN [Suspect]
     Active Substance: ENOXAPARIN
     Indication: Systemic lupus erythematosus
     Dosage: UNK
     Route: 065
  2. DEXAMETHASONE [Suspect]
     Active Substance: DEXAMETHASONE
     Indication: Systemic lupus erythematosus
     Dosage: UNK
     Route: 065
  3. CHLOROQUINE [Suspect]
     Active Substance: CHLOROQUINE
     Indication: Systemic lupus erythematosus
     Dosage: UNK
     Route: 065
  4. ASPIRIN [Suspect]
     Active Substance: ASPIRIN
     Indication: Systemic lupus erythematosus
     Dosage: UNK
     Route: 065

REACTIONS (4)
  - Premature delivery [Unknown]
  - Foetal death [Unknown]
  - Premature labour [Unknown]
  - Maternal exposure during pregnancy [Unknown]
